FAERS Safety Report 8769401 (Version 1)
Quarter: 2012Q4

REPORT INFORMATION
  Report Type: 
  Country: US (occurrence: US)
  Receive Date: 20120903
  Receipt Date: 20120903
  Transmission Date: 20130627
  Serious: Yes (Death, Hospitalization)
  Sender: FDA-Public Use
  Company Number: PHHY2012US075928

PATIENT
  Age: 96 Year
  Sex: Female

DRUGS (1)
  1. ASCRIPTIN BUFFERED REG STRENGTH TABLETS [Suspect]
     Indication: ARTERIAL THROMBOSIS
     Dosage: 1 DF, QD
     Route: 048
     Dates: end: 200611

REACTIONS (3)
  - Death [Fatal]
  - Diverticulitis [Unknown]
  - Incorrect drug administration duration [Unknown]
